FAERS Safety Report 19872788 (Version 1)
Quarter: 2021Q3

REPORT INFORMATION
  Report Type: Spontaneous
  Country: US (occurrence: US)
  Receive Date: 20210923
  Receipt Date: 20210923
  Transmission Date: 20211014
  Serious: No
  Sender: FDA-Public Use
  Company Number: None

PATIENT
  Age: 73 Year
  Sex: Male
  Weight: 103 kg

DRUGS (1)
  1. BARICITINIB (BARICITINIB 2MG TAB) [Suspect]
     Active Substance: BARICITINIB
     Route: 048
     Dates: start: 20210912, end: 20210916

REACTIONS (2)
  - Hospice care [None]
  - Acute respiratory failure [None]

NARRATIVE: CASE EVENT DATE: 20210917
